FAERS Safety Report 5246151-3 (Version None)
Quarter: 2007Q1

REPORT INFORMATION
  Report Type: 
  Country: None (occurrence: None)
  Receive Date: 20070220
  Receipt Date: 20070209
  Transmission Date: 20070707
  Serious: Yes (Hospitalization)
  Sender: FDA-Public Use
  Company Number: OSCN-NO-0702S-0076

PATIENT
  Age: 24 Hour
  Sex: Male

DRUGS (4)
  1. OMNISCAN [Suspect]
     Indication: DRUG USE FOR UNKNOWN INDICATION
     Dosage: 10 ML, SINGLE DOSE, I.V.
     Route: 042
     Dates: start: 20061121, end: 20061121
  2. ALFACALCIDOL (ALFAROL) [Concomitant]
  3. DEFENIDOL HYDROCHLORIDE (WANSAR) [Concomitant]
  4. PREDNISOLONE [Concomitant]

REACTIONS (4)
  - PRURITUS [None]
  - SCLERODERMA [None]
  - SKIN HYPERTROPHY [None]
  - URTICARIA [None]
